FAERS Safety Report 10264711 (Version 1)
Quarter: 2014Q2

REPORT INFORMATION
  Report Type: Spontaneous
  Country: US (occurrence: None)
  Receive Date: 20140625
  Receipt Date: 20140625
  Transmission Date: 20141212
  Serious: No
  Sender: FDA-Public Use
  Company Number: None

PATIENT
  Age: 17 Year
  Sex: Male
  Weight: 108.41 kg

DRUGS (3)
  1. TENEX [Suspect]
     Indication: IMPULSE-CONTROL DISORDER
     Route: 048
  2. TENEX [Suspect]
     Indication: ATTENTION DEFICIT/HYPERACTIVITY DISORDER
     Route: 048
  3. TENEX (GUANFACINE) IMMEDIATE-RELEASE (GENERIC [Concomitant]

REACTIONS (1)
  - Drug ineffective [None]
